FAERS Safety Report 23488667 (Version 4)
Quarter: 2024Q2

REPORT INFORMATION
  Report Type: Spontaneous
  Country: US (occurrence: US)
  Receive Date: 20240206
  Receipt Date: 20240527
  Transmission Date: 20240716
  Serious: No
  Sender: FDA-Public Use
  Company Number: US-BRISTOL-MYERS SQUIBB COMPANY-2024-019615

PATIENT
  Age: 40 Year
  Sex: Female

DRUGS (2)
  1. SPRYCEL [Suspect]
     Active Substance: DASATINIB
     Indication: Chronic myeloid leukaemia
     Route: 048
     Dates: start: 202402
  2. SPRYCEL [Suspect]
     Active Substance: DASATINIB
     Route: 048
     Dates: start: 202402

REACTIONS (3)
  - Rash [Unknown]
  - Fatigue [Unknown]
  - Rash papular [Unknown]
